FAERS Safety Report 4544469-0 (Version None)
Quarter: 2004Q4

REPORT INFORMATION
  Report Type: 
  Country: None (occurrence: None)
  Receive Date: 20041229
  Receipt Date: 20041214
  Transmission Date: 20050328
  Serious: Yes (Hospitalization)
  Sender: FDA-Public Use
  Company Number: 2004-123561-NL

PATIENT
  Age: 76 Year
  Sex: Male

DRUGS (1)
  1. TICE BCG [Suspect]
     Indication: BLADDER CANCER
     Dosage: 1 DF WEEKLY INTRAVESICAL, 6 WEEKLY INSTALLATIONS
     Route: 043
     Dates: start: 20041004, end: 20041122

REACTIONS (5)
  - BLADDER CANCER RECURRENT [None]
  - HAEMATURIA [None]
  - HAEMORRHAGE URINARY TRACT [None]
  - URINARY RETENTION [None]
  - URINARY TRACT OBSTRUCTION [None]
